FAERS Safety Report 5600344-1 (Version None)
Quarter: 2008Q1

REPORT INFORMATION
  Report Type: 
  Country: None (occurrence: None)
  Receive Date: 20080123
  Receipt Date: 20080111
  Transmission Date: 20080703
  Serious: Yes (Other)
  Sender: FDA-Public Use
  Company Number: US-JNJFOC-20080103270

PATIENT
  Sex: Male
  Weight: 116.58 kg

DRUGS (4)
  1. REMICADE [Suspect]
     Route: 042
  2. REMICADE [Suspect]
     Indication: COLITIS ULCERATIVE
     Route: 042
  3. ASACOL [Concomitant]
     Route: 048
  4. PURENATEL [Concomitant]
     Route: 048

REACTIONS (5)
  - ABASIA [None]
  - DYSPNOEA [None]
  - FLUSHING [None]
  - INFUSION RELATED REACTION [None]
  - MUSCLE FATIGUE [None]
